FAERS Safety Report 23160676 (Version 1)
Quarter: 2023Q4

REPORT INFORMATION
  Report Type: Spontaneous
  Country: CN (occurrence: CN)
  Receive Date: 20231108
  Receipt Date: 20231108
  Transmission Date: 20240110
  Serious: Yes (Hospitalization)
  Sender: FDA-Public Use
  Company Number: CN-PFIZER INC-PV202300179952

PATIENT
  Age: 5 Year
  Sex: Male
  Weight: 22 kg

DRUGS (8)
  1. CYTARABINE [Suspect]
     Active Substance: CYTARABINE
     Indication: Burkitt^s lymphoma
     Dosage: 1.698 G, 2X/DAY
     Route: 041
     Dates: start: 20230925, end: 20230926
  2. CYTARABINE [Suspect]
     Active Substance: CYTARABINE
     Indication: Leukaemia
  3. ETOPOSIDE [Suspect]
     Active Substance: ETOPOSIDE
     Indication: Burkitt^s lymphoma
     Dosage: 0.127 G, 1X/DAY
     Route: 041
     Dates: start: 20230927, end: 20230928
  4. ETOPOSIDE [Suspect]
     Active Substance: ETOPOSIDE
     Indication: Leukaemia
  5. RITUXIMAB [Suspect]
     Active Substance: RITUXIMAB
     Indication: Burkitt^s lymphoma
     Dosage: 318.37 MG, 1X/DAY
     Route: 041
     Dates: start: 20230924, end: 20230924
  6. RITUXIMAB [Suspect]
     Active Substance: RITUXIMAB
     Indication: Leukaemia
  7. VINDESINE SULFATE [Suspect]
     Active Substance: VINDESINE SULFATE
     Indication: Burkitt^s lymphoma
     Dosage: 2.547 MG, 1X/DAY
     Route: 041
     Dates: start: 20230924, end: 20230924
  8. VINDESINE SULFATE [Suspect]
     Active Substance: VINDESINE SULFATE
     Indication: Leukaemia

REACTIONS (2)
  - Myelosuppression [Recovering/Resolving]
  - Post procedural infection [Recovering/Resolving]

NARRATIVE: CASE EVENT DATE: 20231004
